FAERS Safety Report 4330083-9 (Version None)
Quarter: 2004Q1

REPORT INFORMATION
  Report Type: 
  Country: None (occurrence: None)
  Receive Date: 20040329
  Receipt Date: 20040205
  Transmission Date: 20041129
  Serious: No
  Sender: FDA-Public Use
  Company Number: 03P-163-0217890-00

PATIENT
  Age: 57 Year
  Sex: Female
  Weight: 69.8539 kg

DRUGS (12)
  1. HUMIRA [Suspect]
     Indication: RHEUMATOID ARTHRITIS
     Dosage: 40 MG, 1 IN 2 WK, SUBCUTANEOUS
     Route: 058
     Dates: start: 20030429, end: 20031101
  2. HUMIRA [Suspect]
     Indication: RHEUMATOID ARTHRITIS
     Dosage: 40 MG, 1 IN 2 WK, SUBCUTANEOUS
     Route: 058
     Dates: start: 20031101
  3. METHOTREXATE [Concomitant]
  4. HYDROXYCHLOROQUINE PHOSPHATE [Concomitant]
  5. MISOPROSTOL [Concomitant]
  6. NAPROXEN [Concomitant]
  7. LANSOPRAZOLE [Concomitant]
  8. LEVOTHYROXINE SODIUM [Concomitant]
  9. ALENDRONATE SODIUM [Concomitant]
  10. FUROSEMIDE [Concomitant]
  11. METHOTREXATE SODIUM [Concomitant]
  12. AMOXICILLIN TRIHYDRATE [Concomitant]

REACTIONS (13)
  - ARTHRALGIA [None]
  - CONTUSION [None]
  - HEADACHE [None]
  - HYPOAESTHESIA [None]
  - INJECTION SITE BURNING [None]
  - INJECTION SITE HAEMORRHAGE [None]
  - INJECTION SITE VESICLES [None]
  - MUSCLE FATIGUE [None]
  - MYALGIA [None]
  - NASAL CONGESTION [None]
  - PARAESTHESIA [None]
  - PHARYNGOLARYNGEAL PAIN [None]
  - STOMATITIS [None]
